FAERS Safety Report 7471095-6 (Version None)
Quarter: 2011Q2

REPORT INFORMATION
  Report Type: 
  Country: None (occurrence: None)
  Receive Date: 20110510
  Receipt Date: 20110430
  Transmission Date: 20111010
  Serious: Yes (Other)
  Sender: FDA-Public Use
  Company Number: BR-BAYER-2011-037606

PATIENT
  Age: 31 Year
  Sex: Female
  Weight: 73 kg

DRUGS (6)
  1. APRAZ [Concomitant]
     Indication: PANIC DISORDER
     Dosage: 0.5 DF, OM
     Route: 048
     Dates: start: 20090801
  2. YAZ [Suspect]
     Indication: FLUID RETENTION
  3. APRAZ [Concomitant]
     Dosage: 1 DF, HS
     Route: 048
     Dates: start: 20090801
  4. FLUOXETINE [Concomitant]
     Indication: PANIC DISORDER
     Dosage: 1 DF, OM
     Route: 048
     Dates: start: 20090801
  5. ORAL CONTRACEPTIVE NOS [Concomitant]
     Indication: CONTRACEPTION
     Dosage: UNK
     Route: 048
     Dates: end: 20110101
  6. YAZ [Suspect]
     Indication: CONTRACEPTION
     Dosage: UNK
     Route: 048
     Dates: start: 20110417

REACTIONS (2)
  - HEADACHE [None]
  - BLOOD PRESSURE INCREASED [None]
